FAERS Safety Report 4280020-0 (Version None)
Quarter: 2004Q1

REPORT INFORMATION
  Report Type: 
  Country: None (occurrence: None)
  Receive Date: 20040126
  Receipt Date: 20040116
  Transmission Date: 20041129
  Serious: Yes (Disabling)
  Sender: FDA-Public Use
  Company Number: HQWYE464019JAN04

PATIENT
  Age: 42 Year
  Sex: Female

DRUGS (1)
  1. EFFEXOR XR [Suspect]
     Indication: DEPRESSION
     Dosage: 300 MG 1X PER 1 DAY ORAL
     Route: 048

REACTIONS (2)
  - FIBROMYALGIA [None]
  - MYALGIA [None]
